FAERS Safety Report 10157050 (Version 8)
Quarter: 2014Q3

REPORT INFORMATION
  Report Type: Spontaneous
  Country: US (occurrence: US)
  Receive Date: 20140507
  Receipt Date: 20140812
  Transmission Date: 20150326
  Serious: Yes (Other)
  Sender: FDA-Public Use
  Company Number: US-PFIZER INC-2014122852

PATIENT
  Age: 61 Year
  Sex: Female
  Weight: 38.1 kg

DRUGS (6)
  1. IMODIUM [Concomitant]
     Active Substance: LOPERAMIDE HYDROCHLORIDE
     Dosage: UNK
  2. SUTENT [Suspect]
     Active Substance: SUNITINIB MALATE
     Dosage: 37.5 MG, 2X/DAY
     Route: 048
     Dates: start: 201404
  3. SUMATRIPTAN SUCCINATE. [Concomitant]
     Active Substance: SUMATRIPTAN SUCCINATE
     Indication: MIGRAINE
     Dosage: UNK
  4. SUTENT [Suspect]
     Active Substance: SUNITINIB MALATE
     Indication: GASTROINTESTINAL STROMAL TUMOUR
     Dosage: 25 MG, UNK
     Route: 048
     Dates: start: 20140227
  5. SUTENT [Suspect]
     Active Substance: SUNITINIB MALATE
     Dosage: 37.5 MG, 1X/DAY
     Route: 048
     Dates: start: 2014
  6. SUTENT [Suspect]
     Active Substance: SUNITINIB MALATE
     Dosage: 25 MG, 1X/DAY
     Route: 048
     Dates: start: 201406

REACTIONS (22)
  - Staphylococcal infection [Unknown]
  - Vomiting [Unknown]
  - Dry skin [Unknown]
  - Tooth disorder [Unknown]
  - Dysgeusia [Unknown]
  - Skin haemorrhage [Recovered/Resolved]
  - Nausea [Recovered/Resolved]
  - Hypotension [Unknown]
  - Abdominal distension [Unknown]
  - Impaired healing [Unknown]
  - Asthenia [Unknown]
  - Migraine [Not Recovered/Not Resolved]
  - Sinusitis [Unknown]
  - Feeling abnormal [Unknown]
  - Dizziness [Unknown]
  - Decreased appetite [Recovered/Resolved]
  - Diarrhoea [Recovered/Resolved]
  - Hyperkeratosis [Unknown]
  - Chest pain [Unknown]
  - Abdominal pain upper [Recovered/Resolved]
  - Skin fissures [Unknown]
  - Palmar-plantar erythrodysaesthesia syndrome [Recovered/Resolved]

NARRATIVE: CASE EVENT DATE: 2014
